FAERS Safety Report 14596403 (Version 2)
Quarter: 2018Q2

REPORT INFORMATION
  Report Type: Spontaneous
  Country: US (occurrence: US)
  Receive Date: 20180303
  Receipt Date: 20180418
  Transmission Date: 20180711
  Serious: Yes (Death, Hospitalization)
  Sender: FDA-Public Use
  Company Number: PHEH2018US008481

PATIENT
  Age: 51 Year
  Sex: Female
  Weight: 43 kg

DRUGS (1)
  1. GILENYA [Suspect]
     Active Substance: FINGOLIMOD HYDROCHLORIDE
     Indication: MULTIPLE SCLEROSIS
     Dosage: 0.5 MG, QD
     Route: 048
     Dates: start: 20120612

REACTIONS (3)
  - Sepsis [Fatal]
  - Pneumonia aspiration [Unknown]
  - Respiratory failure [Fatal]

NARRATIVE: CASE EVENT DATE: 201712
